FAERS Safety Report 7733519-6 (Version None)
Quarter: 2011Q3

REPORT INFORMATION
  Report Type: 
  Country: None (occurrence: None)
  Receive Date: 20110907
  Receipt Date: 20110907
  Transmission Date: 20111222
  Serious: Yes (Disabling)
  Sender: FDA-Public Use
  Company Number: None

PATIENT
  Sex: Female

DRUGS (3)
  1. METFORMIN HCL [Concomitant]
     Route: 048
  2. CYMBALTA [Suspect]
     Dosage: 20MG
     Route: 048
     Dates: start: 20110830, end: 20110830
  3. GLYBURIDE [Concomitant]
     Route: 048

REACTIONS (6)
  - DYSPEPSIA [None]
  - NAUSEA [None]
  - EPIGASTRIC DISCOMFORT [None]
  - DIZZINESS [None]
  - SLUGGISHNESS [None]
  - HYPOGLYCAEMIA [None]
